FAERS Safety Report 9301905 (Version 1)
Quarter: 2013Q2

REPORT INFORMATION
  Report Type: Spontaneous
  Country: US (occurrence: US)
  Receive Date: 20130521
  Receipt Date: 20130521
  Transmission Date: 20140414
  Serious: No
  Sender: FDA-Public Use
  Company Number: US-ASTRAZENECA-2013SE32530

PATIENT
  Age: 74 Year
  Sex: Female
  Weight: 66.2 kg

DRUGS (4)
  1. SEROQUEL XR [Suspect]
     Indication: DEPRESSION
     Route: 048
  2. THYROID [Concomitant]
     Route: 065
  3. OXCARBAZEPINE [Concomitant]
     Route: 065
  4. CYMBALTA [Concomitant]
     Route: 065

REACTIONS (4)
  - Nausea [Unknown]
  - Insomnia [Unknown]
  - Abdominal discomfort [Unknown]
  - Feeling abnormal [Unknown]
